FAERS Safety Report 7755550-7 (Version None)
Quarter: 2011Q3

REPORT INFORMATION
  Report Type: 
  Country: None (occurrence: None)
  Receive Date: 20110916
  Receipt Date: 20110907
  Transmission Date: 20111222
  Serious: Yes (Hospitalization)
  Sender: FDA-Public Use
  Company Number: DE-B.I. PHARMACEUTICALS,INC./RIDGEFIELD-2011-DE-04773DE

PATIENT
  Sex: Female
  Weight: 62 kg

DRUGS (4)
  1. ISOPTIN [Concomitant]
     Indication: ATRIAL FIBRILLATION
     Dosage: 160 MG
     Route: 048
     Dates: start: 20090101
  2. PRADAXA [Suspect]
     Indication: ATRIAL FIBRILLATION
     Dosage: 220 MG
     Route: 048
     Dates: start: 20101201
  3. ATORVASTATIN CALCIUM [Concomitant]
     Indication: HYPERCHOLESTEROLAEMIA
     Dosage: 20 MG
     Route: 048
     Dates: start: 20000101
  4. NOVODIGAL [Concomitant]
     Indication: ATRIAL FIBRILLATION
     Dosage: 0.2 MG
     Route: 048
     Dates: start: 20070101

REACTIONS (2)
  - GASTROINTESTINAL HAEMORRHAGE [None]
  - THROMBIN TIME PROLONGED [None]
